FAERS Safety Report 13714151 (Version 1)
Quarter: 2017Q3

REPORT INFORMATION
  Report Type: Spontaneous
  Country: NL (occurrence: NL)
  Receive Date: 20170704
  Receipt Date: 20170704
  Transmission Date: 20171127
  Serious: Yes (Death)
  Sender: FDA-Public Use
  Company Number: NL-APOTEX-2017AP013750

PATIENT

DRUGS (2)
  1. MACROGOL [Concomitant]
     Active Substance: POLYETHYLENE GLYCOLS
     Indication: PRODUCT USED FOR UNKNOWN INDICATION
     Dosage: 1 DF,SACHET, QD
     Route: 048
  2. PAROXETINE TABLET [Suspect]
     Active Substance: PAROXETINE
     Indication: ANXIETY
     Dosage: 10 MG, QD
     Route: 065
     Dates: start: 20170608

REACTIONS (1)
  - Completed suicide [Fatal]

NARRATIVE: CASE EVENT DATE: 20170608
